FAERS Safety Report 24065269 (Version 1)
Quarter: 2024Q3

REPORT INFORMATION
  Report Type: Spontaneous
  Country: US (occurrence: None)
  Receive Date: 20240708
  Receipt Date: 20240708
  Transmission Date: 20241017
  Serious: No
  Sender: Public
  Company Number: None

PATIENT
  Age: 36 Year
  Sex: Male
  Weight: 83.25 kg

DRUGS (1)
  1. ENCLOMIPHENE [Suspect]
     Active Substance: ENCLOMIPHENE
     Indication: Hypogonadism
     Dosage: OTHER QUANTITY : 2 CAPSULE(S);?OTHER FREQUENCY : 48 HOURS;?
     Route: 048
     Dates: start: 20240706, end: 20240706

REACTIONS (5)
  - Blood oestrogen increased [None]
  - Anxiety [None]
  - Brain fog [None]
  - Insomnia [None]
  - Therapy cessation [None]

NARRATIVE: CASE EVENT DATE: 20240706
